FAERS Safety Report 4860856-5 (Version None)
Quarter: 2005Q4

REPORT INFORMATION
  Report Type: 
  Country: None (occurrence: None)
  Receive Date: 20051220
  Receipt Date: 20051209
  Transmission Date: 20060501
  Serious: Yes (Other)
  Sender: FDA-Public Use
  Company Number: CA-BRISTOL-MYERS SQUIBB COMPANY-13219316

PATIENT
  Age: 86 Year
  Sex: Male

DRUGS (10)
  1. TEQUIN [Suspect]
     Route: 048
  2. ACTOS [Concomitant]
  3. ADALAT [Concomitant]
  4. DIOVAN [Concomitant]
  5. GLUCONORM [Concomitant]
  6. LOSEC [Concomitant]
  7. METOPROLOL [Concomitant]
  8. NITRO-DUR [Concomitant]
  9. PLAVIX [Concomitant]
  10. PRAVACHOL [Concomitant]

REACTIONS (1)
  - HYPOGLYCAEMIA [None]
